FAERS Safety Report 11951020 (Version 1)
Quarter: 2016Q1

REPORT INFORMATION
  Report Type: Spontaneous
  Country: US (occurrence: None)
  Receive Date: 20160122
  Receipt Date: 20160122
  Transmission Date: 20160526
  Serious: No
  Sender: FDA-Public Use
  Company Number: None

PATIENT
  Sex: Female

DRUGS (1)
  1. ALPRAZOLAM. [Suspect]
     Active Substance: ALPRAZOLAM

REACTIONS (6)
  - Nightmare [None]
  - Product colour issue [None]
  - Product substitution issue [None]
  - Drug dispensing error [None]
  - Feeling abnormal [None]
  - Incorrect dose administered [None]

NARRATIVE: CASE EVENT DATE: 2015
